FAERS Safety Report 25808134 (Version 1)
Quarter: 2025Q3

REPORT INFORMATION
  Report Type: Report from Study
  Country: KR (occurrence: KR)
  Receive Date: 20250916
  Receipt Date: 20250916
  Transmission Date: 20251020
  Serious: Yes (Hospitalization)
  Sender: MYLAN
  Company Number: KR-MYLANLABS-2025M1076608

PATIENT
  Age: 79 Year
  Sex: Female
  Weight: 55 kg

DRUGS (13)
  1. PREGABALIN [Suspect]
     Active Substance: PREGABALIN
     Indication: Post herpetic neuralgia
     Dosage: 150 MILLIGRAM, QD
     Dates: start: 20210616, end: 20210624
  2. PREGABALIN [Suspect]
     Active Substance: PREGABALIN
     Dosage: 300 MILLIGRAM, QD
     Dates: start: 20210625
  3. CHOLINE ALFOSCERATE [Concomitant]
     Active Substance: CHOLINE ALFOSCERATE
     Indication: Cerebral infarction
     Dosage: 1 DOSAGE FORM, BID (EVERY 12 HOURS)
     Dates: start: 20190622
  4. LIPITOR [Concomitant]
     Active Substance: ATORVASTATIN CALCIUM
     Indication: Hyperlipidaemia
     Dosage: 1 DOSAGE FORM, QD
     Dates: start: 20210611
  5. CILOSTAZOL [Concomitant]
     Active Substance: CILOSTAZOL
     Indication: Cerebral infarction
     Dosage: 1 DOSAGE FORM, QD
     Dates: start: 20210611
  6. OLMESARTAN MEDOXOMIL [Concomitant]
     Active Substance: OLMESARTAN MEDOXOMIL
     Indication: Hypertension
     Dosage: 1 DOSAGE FORM, QD
     Dates: start: 20201016
  7. DEXIBUPROFEN [Concomitant]
     Active Substance: DEXIBUPROFEN
     Indication: Neuropathy peripheral
     Dosage: 1 DOSAGE FORM, BID (EVERY 12 HOURS)
     Dates: start: 20210606
  8. METFORMIN HYDROCHLORIDE [Concomitant]
     Active Substance: METFORMIN HYDROCHLORIDE
     Indication: Diabetes mellitus
     Dosage: 1 DOSAGE FORM, QD
     Dates: start: 20210604
  9. ACETAMINOPHEN\TRAMADOL HYDROCHLORIDE [Concomitant]
     Active Substance: ACETAMINOPHEN\TRAMADOL HYDROCHLORIDE
     Indication: Neuropathy peripheral
     Dosage: 1 DOSAGE FORM, BID (EVERY 12 HOURS)
     Dates: start: 20210616
  10. EDOXABAN TOSYLATE [Concomitant]
     Active Substance: EDOXABAN TOSYLATE
     Indication: Atrial fibrillation
     Dosage: 1 DOSAGE FORM, QD
     Dates: start: 20210609
  11. PROPIVERINE HYDROCHLORIDE [Concomitant]
     Active Substance: PROPIVERINE HYDROCHLORIDE
     Indication: Dysuria
     Dosage: 0.5 MILLIGRAM, QD
     Dates: start: 20210610
  12. DULOXETINE HYDROCHLORIDE [Concomitant]
     Active Substance: DULOXETINE HYDROCHLORIDE
     Indication: Neuropathy peripheral
     Dosage: 1 DOSAGE FORM, QD
     Dates: start: 20210616
  13. HYDROXYZINE HYDROCHLORIDE [Concomitant]
     Active Substance: HYDROXYZINE HYDROCHLORIDE
     Indication: Hypersensitivity
     Dosage: 1 DOSAGE FORM, BID (EVERY 12 HOURS)
     Dates: start: 20210621

REACTIONS (1)
  - Post herpetic neuralgia [Recovering/Resolving]

NARRATIVE: CASE EVENT DATE: 20210624
